FAERS Safety Report 6731163-0 (Version None)
Quarter: 2010Q2

REPORT INFORMATION
  Report Type: 
  Country: None (occurrence: None)
  Receive Date: 20100518
  Receipt Date: 20100517
  Transmission Date: 20101027
  Serious: Yes (Life-Threatening, Hospitalization, Other)
  Sender: FDA-Public Use
  Company Number: TW-ROXANE LABORATORIES, INC.-2010-RO-00578RO

PATIENT
  Age: 26 Year
  Sex: Female

DRUGS (7)
  1. LORAZEPAM [Suspect]
     Dosage: 1.5 MG
  2. LORAZEPAM [Suspect]
     Route: 030
  3. QUETIAPINE [Suspect]
     Indication: DRUG THERAPY
  4. ARIPIPRAZOLE [Suspect]
     Indication: DRUG THERAPY
  5. CLOZAPINE [Suspect]
     Indication: DRUG THERAPY
  6. BIPIDEN [Suspect]
     Dosage: 1.5 MG
  7. BIPIDEN [Suspect]
     Route: 030

REACTIONS (4)
  - DELUSION [None]
  - HALLUCINATION, AUDITORY [None]
  - MUSCULAR WEAKNESS [None]
  - RESPIRATORY FAILURE [None]
